FAERS Safety Report 8816091 (Version 4)
Quarter: 2013Q1

REPORT INFORMATION
  Report Type: Spontaneous
  Country: US (occurrence: US)
  Receive Date: 20120928
  Receipt Date: 20130107
  Transmission Date: 20140127
  Serious: Yes (Hospitalization, Other)
  Sender: FDA-Public Use
  Company Number: US-PFIZER INC-2012239443

PATIENT
  Age: 60 Year
  Sex: Female
  Weight: 109 kg

DRUGS (9)
  1. LYRICA [Suspect]
     Indication: HERPES ZOSTER
     Dosage: 50 MG, 2X/DAY
  2. LYRICA [Suspect]
     Indication: PERIPHERAL NERVE INJURY
  3. SINGULAIR [Concomitant]
     Indication: ASTHMA
     Dosage: UNK
  4. ADVAIR [Concomitant]
     Indication: ASTHMA
     Dosage: UNK
  5. ALBUTEROL [Concomitant]
     Indication: ASTHMA
     Dosage: UNK
  6. ATROVENT [Concomitant]
     Indication: ASTHMA
     Dosage: UNK
  7. MELOXICAM [Concomitant]
     Indication: OSTEOARTHRITIS
     Dosage: UNK
  8. TIZANIDINE [Concomitant]
     Indication: MUSCLE SPASMS
     Dosage: UNK
  9. TIZANIDINE [Concomitant]
     Indication: PAIN IN EXTREMITY

REACTIONS (2)
  - Arthropathy [Unknown]
  - Leukaemia [Unknown]
